FAERS Safety Report 7477690-2 (Version None)
Quarter: 2011Q2

REPORT INFORMATION
  Report Type: 
  Country: None (occurrence: None)
  Receive Date: 20110513
  Receipt Date: 20110328
  Transmission Date: 20111010
  Serious: Yes (Hospitalization)
  Sender: FDA-Public Use
  Company Number: US-BAYER-201039109NA

PATIENT
  Age: 21 Year
  Sex: Female
  Weight: 90.703 kg

DRUGS (6)
  1. YAZ [Suspect]
     Indication: ACNE
     Dosage: UNK UNK, QD
     Route: 048
     Dates: start: 20080501, end: 20080801
  2. NSAID'S [Concomitant]
  3. LIPITOR [Concomitant]
  4. ANTIBIOTICS [Concomitant]
  5. YAZ [Suspect]
     Indication: PREMENSTRUAL SYNDROME
     Dosage: UNK, QD
     Route: 048
     Dates: start: 20080501, end: 20080801
  6. LEVOFLOXACIN [Concomitant]
     Indication: URINARY TRACT INFECTION
     Dosage: UNK
     Dates: start: 20080801

REACTIONS (2)
  - THROMBOSIS [None]
  - PULMONARY EMBOLISM [None]
